FAERS Safety Report 6639286-1 (Version None)
Quarter: 2010Q1

REPORT INFORMATION
  Report Type: 
  Country: None (occurrence: None)
  Receive Date: 20100315
  Receipt Date: 20100225
  Transmission Date: 20100710
  Serious: Yes (Death)
  Sender: FDA-Public Use
  Company Number: 2010VX000052

PATIENT
  Age: 28 Year
  Sex: Female

DRUGS (3)
  1. DIASTAT [Suspect]
     Indication: DRUG USE FOR UNKNOWN INDICATION
  2. OXYCODONE HCL [Suspect]
     Indication: DRUG USE FOR UNKNOWN INDICATION
  3. HYDROCODONE BITARTRATE [Suspect]
     Indication: DRUG USE FOR UNKNOWN INDICATION

REACTIONS (9)
  - ACCIDENTAL DEATH [None]
  - CARDIOMEGALY [None]
  - DRUG ABUSE [None]
  - DRUG TOXICITY [None]
  - EXCORIATION [None]
  - LEFT VENTRICULAR HYPERTROPHY [None]
  - POISONING [None]
  - PULMONARY CONGESTION [None]
  - PULMONARY OEDEMA [None]
